FAERS Safety Report 15752063 (Version 14)
Quarter: 2019Q3

REPORT INFORMATION
  Report Type: Report from Study
  Country: US (occurrence: US)
  Receive Date: 20181221
  Receipt Date: 20190809
  Transmission Date: 20191004
  Serious: Yes (Death, Hospitalization)
  Sender: FDA-Public Use
  Company Number: US-ACTELION-A-NJ2018-167218

PATIENT
  Age: 68 Year
  Sex: Female
  Weight: 58.96 kg

DRUGS (4)
  1. VELETRI [Suspect]
     Active Substance: EPOPROSTENOL
     Dosage: 46.6 NG/KG, PER MIN
     Route: 042
  2. VELETRI [Suspect]
     Active Substance: EPOPROSTENOL
     Dosage: UNK
     Route: 042
  3. VELETRI [Suspect]
     Active Substance: EPOPROSTENOL
     Indication: PULMONARY ARTERIAL HYPERTENSION
     Dosage: 41 NG/KG, PER MIN
     Route: 042
  4. VELETRI [Suspect]
     Active Substance: EPOPROSTENOL
     Dosage: 48.2 NG/KG, PER MIN
     Route: 042

REACTIONS (24)
  - Atrial fibrillation [Unknown]
  - Catheter site erythema [Unknown]
  - Dyspnoea [Unknown]
  - Diarrhoea [Unknown]
  - Catheter site discharge [Unknown]
  - Gastroenteritis [Unknown]
  - Device infusion issue [Unknown]
  - Nausea [Unknown]
  - Blood pressure abnormal [Unknown]
  - Hypotension [Unknown]
  - Nasopharyngitis [Unknown]
  - Nasal congestion [Unknown]
  - Suture related complication [Unknown]
  - Catheter placement [Unknown]
  - Feeling abnormal [Unknown]
  - Death [Fatal]
  - Catheter site vesicles [Unknown]
  - Oedema [Unknown]
  - Cardiac failure congestive [Unknown]
  - Vomiting [Unknown]
  - Heart rate abnormal [Unknown]
  - Hospitalisation [Not Recovered/Not Resolved]
  - Abdominal pain [Unknown]
  - Pneumonia [Unknown]

NARRATIVE: CASE EVENT DATE: 20180204
